FAERS Safety Report 12078925 (Version 1)
Quarter: 2016Q1

REPORT INFORMATION
  Report Type: Spontaneous
  Country: US (occurrence: US)
  Receive Date: 20160216
  Receipt Date: 20160216
  Transmission Date: 20160526
  Serious: No
  Sender: FDA-Public Use
  Company Number: US-BAYER-2016-029347

PATIENT
  Age: 49 Year
  Sex: Male
  Weight: 156.46 kg

DRUGS (2)
  1. MIRALAX [Suspect]
     Active Substance: POLYETHYLENE GLYCOL 3350
     Indication: CONSTIPATION
     Dosage: 1-3 DOSE ONCE DAILY UP TO 3/4 OF THE BOTTLE DAILY FOR 13 DAYS, UP TO 3 TIMES A DAY
     Route: 048
     Dates: start: 201601, end: 20160203
  2. BAYER LOW DOSE [Concomitant]
     Active Substance: ASPIRIN

REACTIONS (4)
  - Product use issue [Recovered/Resolved]
  - Product use issue [None]
  - Flatulence [None]
  - Drug ineffective [Recovered/Resolved]

NARRATIVE: CASE EVENT DATE: 201601
